FAERS Safety Report 7441200-6 (Version None)
Quarter: 2011Q2

REPORT INFORMATION
  Report Type: 
  Country: None (occurrence: None)
  Receive Date: 20110428
  Receipt Date: 20110418
  Transmission Date: 20111010
  Serious: No
  Sender: FDA-Public Use
  Company Number: US-BIOGENIDEC-2010BI034051

PATIENT
  Sex: Female

DRUGS (1)
  1. TYSABRI [Suspect]
     Indication: MULTIPLE SCLEROSIS
     Route: 042
     Dates: start: 20100910, end: 20110311

REACTIONS (18)
  - FATIGUE [None]
  - GAIT DISTURBANCE [None]
  - BONE PAIN [None]
  - ARTHRALGIA [None]
  - PYREXIA [None]
  - PAIN [None]
  - ABASIA [None]
  - NUCLEAR MAGNETIC RESONANCE IMAGING ABNORMAL [None]
  - BACK PAIN [None]
  - DYSPNOEA [None]
  - MULTIPLE SCLEROSIS RELAPSE [None]
  - MENTAL IMPAIRMENT [None]
  - MOBILITY DECREASED [None]
  - MALAISE [None]
  - URINARY INCONTINENCE [None]
  - PAIN IN EXTREMITY [None]
  - MEMORY IMPAIRMENT [None]
  - INTERVERTEBRAL DISC DEGENERATION [None]
